FAERS Safety Report 10356177 (Version 1)
Quarter: 2014Q3

REPORT INFORMATION
  Report Type: Spontaneous
  Country: US (occurrence: US)
  Receive Date: 20140801
  Receipt Date: 20140801
  Transmission Date: 20150326
  Serious: Yes (Hospitalization)
  Sender: FDA-Public Use
  Company Number: US-SUN PHARMACEUTICAL INDUSTRIES LTD-2014SUN01696

PATIENT

DRUGS (7)
  1. CLONIDINE HYDROCHLORIDE TABLETS, USP 0.1 MG [Suspect]
     Active Substance: CLONIDINE HYDROCHLORIDE
     Indication: AGGRESSION
     Dosage: 0.1 MG, AT BED TIME
     Route: 065
  2. RISPERIDONE. [Suspect]
     Active Substance: RISPERIDONE
     Dosage: 0.5 MG, BID
  3. CLONIDINE HYDROCHLORIDE TABLETS, USP 0.1 MG [Suspect]
     Active Substance: CLONIDINE HYDROCHLORIDE
     Indication: OFF LABEL USE
     Dosage: 0.2 MG, AT BED TIME
     Route: 065
  4. RISPERIDONE. [Suspect]
     Active Substance: RISPERIDONE
     Indication: AGGRESSION
     Dosage: 0.25 MG, BID
     Route: 065
  5. ARIPIPRAZOLE [Concomitant]
     Active Substance: ARIPIPRAZOLE
     Dosage: 10 MG, QD
  6. FLUOXETINE [Concomitant]
     Active Substance: FLUOXETINE\FLUOXETINE HYDROCHLORIDE
     Dosage: 10 MG, QD
     Route: 065
  7. RISPERIDONE. [Suspect]
     Active Substance: RISPERIDONE
     Dosage: 1 MG, BID
     Route: 065

REACTIONS (6)
  - Emotional disorder [Unknown]
  - Fear [Unknown]
  - Somnolence [None]
  - Paranoia [Unknown]
  - Sedation [Unknown]
  - Off label use [Unknown]
